FAERS Safety Report 4630826-0 (Version None)
Quarter: 2005Q1

REPORT INFORMATION
  Report Type: 
  Country: None (occurrence: None)
  Receive Date: 20050331
  Receipt Date: 20050331
  Transmission Date: 20050727
  Serious: Yes (Life-Threatening, Hospitalization)
  Sender: FDA-Public Use
  Company Number: None

PATIENT
  Age: 74 Year
  Sex: Male
  Weight: 72.5755 kg

DRUGS (11)
  1. AGRYLIN [Suspect]
     Indication: POLYCYTHAEMIA VERA
     Dosage: ONE CAPSULE DAILY;  INCREASED ON 1/28/05 TO TWO CAPSULES DAILY;DOSE RAISED TO 3 CAPSULES TWICE A DAY
     Dates: start: 20050101
  2. PRILOSEC [Concomitant]
  3. CARDIZEM [Concomitant]
  4. ASPIRIN [Concomitant]
  5. ALLOPURINOL [Concomitant]
  6. SOTALOL HCL [Concomitant]
  7. LASIX [Concomitant]
  8. LISINOPRIL [Concomitant]
  9. DULCOLAX [Concomitant]
  10. DARVOCET [Concomitant]
  11. TYELNOL [Concomitant]

REACTIONS (6)
  - ANAEMIA [None]
  - CARDIAC FIBRILLATION [None]
  - DRUG INEFFECTIVE [None]
  - PHARMACEUTICAL PRODUCT COMPLAINT [None]
  - PLATELET COUNT INCREASED [None]
  - THERAPEUTIC RESPONSE DECREASED [None]
